FAERS Safety Report 15652064 (Version 2)
Quarter: 2020Q2

REPORT INFORMATION
  Report Type: Report from Study
  Country: US (occurrence: US)
  Receive Date: 20181123
  Receipt Date: 20200521
  Transmission Date: 20200713
  Serious: Yes (Other)
  Sender: FDA-Public Use
  Company Number: PHHY2018US159416

PATIENT
  Age: 62 Year
  Sex: Female

DRUGS (1)
  1. GILENYA [Suspect]
     Active Substance: FINGOLIMOD HYDROCHLORIDE
     Indication: MULTIPLE SCLEROSIS
     Dosage: UNK UNK, QD
     Route: 048

REACTIONS (14)
  - Cafe au lait spots [Unknown]
  - Depression [Recovered/Resolved]
  - Lentigo [Recovered/Resolved]
  - Spider naevus [Recovered/Resolved]
  - Lymphopenia [Recovered/Resolved]
  - Oedema peripheral [Recovered/Resolved]
  - Muscle spasms [Recovered/Resolved]
  - Melanocytic naevus [Recovered/Resolved]
  - Seborrhoeic keratosis [Recovered/Resolved]
  - Rash [Recovered/Resolved]
  - Neoplasm skin [Recovered/Resolved]
  - Tremor [Recovered/Resolved]
  - Diarrhoea [Recovered/Resolved]
  - Fibrous histiocytoma [Recovered/Resolved]

NARRATIVE: CASE EVENT DATE: 20180207
